FAERS Safety Report 6492376-9 (Version None)
Quarter: 2009Q4

REPORT INFORMATION
  Report Type: 
  Country: None (occurrence: None)
  Receive Date: 20091208
  Receipt Date: 20091124
  Transmission Date: 20100525
  Serious: Yes (Hospitalization)
  Sender: FDA-Public Use
  Company Number: ADR52172009

PATIENT
  Sex: Male

DRUGS (6)
  1. CITALOPRAM, 20 MG (MFR: UNKNOWN) [Suspect]
     Dosage: 20 MG, 1/1 DAYS, ORAL
     Route: 048
     Dates: start: 20070301, end: 20070301
  2. EPILIM CHRONOSPHERE [Concomitant]
  3. ASPIRIN [Concomitant]
  4. DIGOXIN [Concomitant]
  5. FRUSEMIDE [Concomitant]
  6. RAMIPRIL [Concomitant]

REACTIONS (2)
  - HYPONATRAEMIA [None]
  - MENTAL DISORDER [None]
